FAERS Safety Report 5942449-1 (Version None)
Quarter: 2008Q4

REPORT INFORMATION
  Report Type: 
  Country: None (occurrence: None)
  Receive Date: 20081103
  Receipt Date: 20081012
  Transmission Date: 20090506
  Serious: Yes (Death)
  Sender: FDA-Public Use
  Company Number: CHPA2008US18026

PATIENT
  Age: 32 Year
  Sex: Female

DRUGS (11)
  1. DIPHENHYDRAMINE HCL [Suspect]
     Dosage: ORAL
     Route: 048
  2. MORPHINE [Suspect]
     Dosage: ORAL
     Route: 048
  3. OXYCODONE HCL [Suspect]
     Dosage: ORAL
     Route: 048
  4. ACETAMINOPHEN [Suspect]
     Dosage: ORAL
     Route: 048
  5. VERAPAMIL [Suspect]
     Dosage: ORAL
     Route: 048
  6. PROMETHAZINE [Suspect]
     Dosage: ORAL
     Route: 048
  7. CYCLOBENZAPRINE [Suspect]
     Dosage: ORAL
     Route: 048
  8. TEMAZEPAM [Suspect]
     Dosage: ORAL
     Route: 048
  9. ZOLPIDEM TARTRATE [Suspect]
     Dosage: ORAL
     Route: 048
  10. CARISOPRODOL [Suspect]
     Dosage: ORAL
     Route: 048
  11. DRUG THERAPY NOS (DRUG THERAPY NOS) [Suspect]
     Dosage: ORAL
     Route: 048

REACTIONS (1)
  - DEATH [None]
